FAERS Safety Report 16617021 (Version 1)
Quarter: 2019Q3

REPORT INFORMATION
  Report Type: Spontaneous
  Country: FR (occurrence: FR)
  Receive Date: 20190723
  Receipt Date: 20190723
  Transmission Date: 20191004
  Serious: Yes (Hospitalization)
  Sender: FDA-Public Use
  Company Number: FR-MYLANLABS-2019M1068271

PATIENT
  Age: 65 Year
  Sex: Male
  Weight: 60 kg

DRUGS (9)
  1. AMBISOME [Suspect]
     Active Substance: AMPHOTERICIN B
     Indication: MUCORMYCOSIS
     Dosage: 250 ? 300 MG/J
     Route: 042
     Dates: start: 20181023, end: 20181105
  2. INEXIUM                            /01479302/ [Concomitant]
     Active Substance: ESOMEPRAZOLE MAGNESIUM
     Dosage: 1 DOSAGE FORM, QD
     Route: 048
     Dates: start: 20181103
  3. CEFTAZIDIME. [Concomitant]
     Active Substance: CEFTAZIDIME
     Dosage: 2 ? 4 GR
     Route: 042
     Dates: start: 20181029
  4. METHYLPREDNISOLONE. [Concomitant]
     Active Substance: METHYLPREDNISOLONE
     Dosage: VARIABLE
     Route: 042
     Dates: start: 20181012
  5. FENTANYL. [Suspect]
     Active Substance: FENTANYL
     Indication: SEDATION
     Dosage: VARIABLE
     Route: 041
     Dates: start: 20181010, end: 20181104
  6. NOXAFIL [Concomitant]
     Active Substance: POSACONAZOLE
     Indication: MUCORMYCOSIS
     Dosage: INCONNUE
     Route: 065
     Dates: start: 20181102
  7. JAKAVI [Concomitant]
     Active Substance: RUXOLITINIB
     Indication: GRAFT VERSUS HOST DISEASE
     Dosage: 1 DOSAGE FORM, QD
     Route: 048
     Dates: start: 20181101
  8. MIDAZOLAM [Concomitant]
     Active Substance: MIDAZOLAM HYDROCHLORIDE
     Dosage: VARIABLE
     Route: 041
     Dates: start: 20181011, end: 20181107
  9. ACICLOVIR [Concomitant]
     Active Substance: ACYCLOVIR
     Indication: PROPHYLAXIS
     Dosage: 750 MILLIGRAM, QD
     Route: 048
     Dates: start: 20180903

REACTIONS (1)
  - Mixed liver injury [Recovering/Resolving]

NARRATIVE: CASE EVENT DATE: 20181104
